FAERS Safety Report 12597030 (Version 2)
Quarter: 2016Q3

REPORT INFORMATION
  Report Type: Spontaneous
  Country: CH (occurrence: CH)
  Receive Date: 20160726
  Receipt Date: 20160810
  Transmission Date: 20161109
  Serious: Yes (Hospitalization)
  Sender: FDA-Public Use
  Company Number: CH-TEVA-679373ISR

PATIENT
  Age: 63 Year
  Sex: Female
  Weight: 59.6 kg

DRUGS (6)
  1. CO-AMOXI-MEPHA 625 LACTAB [Suspect]
     Active Substance: AMOXICILLIN\CLAVULANIC ACID
     Indication: PNEUMONITIS
     Dosage: 3 DOSAGE FORMS DAILY; 1 DF = 500 MG AMOXICILLIN + 125 MG CLAVULANIC ACID
     Route: 048
     Dates: start: 20160623
  2. CO-AMOXI-MEPHA 625 LACTAB [Suspect]
     Active Substance: AMOXICILLIN\CLAVULANIC ACID
     Dosage: 2 DOSAGE FORMS DAILY; 1 DF = 500 MG AMOXICILLIN + 125 MG CLAVULANIC ACID
     Route: 048
     Dates: start: 20160611, end: 20160613
  3. TAVANIC [Suspect]
     Active Substance: LEVOFLOXACIN
     Indication: PNEUMONITIS
     Dosage: 1000 MILLIGRAM DAILY; STRENGTH 500 MG
     Route: 048
     Dates: start: 20160609, end: 20160613
  4. CRESTOR [Suspect]
     Active Substance: ROSUVASTATIN CALCIUM
     Dosage: 20 MILLIGRAM DAILY; STRENGTH 20 MG, LONG-TERM USE, THERAPY START DATE UNKNOWN
     Route: 048
     Dates: end: 20160613
  5. TEMESTA EXPIDET [Concomitant]
     Active Substance: LORAZEPAM
     Dosage: 1 MILLIGRAM DAILY; STRENGTH 1 MG
     Route: 060
  6. SURMONTIL [Concomitant]
     Active Substance: TRIMIPRAMINE MALEATE
     Dosage: 75 MILLIGRAM DAILY;
     Route: 048

REACTIONS (2)
  - Asthenia [Recovering/Resolving]
  - Hepatocellular injury [Recovering/Resolving]

NARRATIVE: CASE EVENT DATE: 20160613
